FAERS Safety Report 18493973 (Version 1)
Quarter: 2020Q4

REPORT INFORMATION
  Report Type: Spontaneous
  Country: PT (occurrence: PT)
  Receive Date: 20201112
  Receipt Date: 20201112
  Transmission Date: 20210114
  Serious: Yes (Other)
  Sender: FDA-Public Use
  Company Number: PT-SA-2020SA314493

PATIENT

DRUGS (1)
  1. DUPILUMAB [Suspect]
     Active Substance: DUPILUMAB
     Indication: DERMATITIS ATOPIC
     Dosage: UNK
     Dates: start: 20200115

REACTIONS (5)
  - Dermatitis exfoliative generalised [Unknown]
  - Erythema [Unknown]
  - Pruritus [Unknown]
  - Conjunctivitis [Unknown]
  - Eczema [Unknown]

NARRATIVE: CASE EVENT DATE: 2020
